FAERS Safety Report 15713488 (Version 2)
Quarter: 2018Q4

REPORT INFORMATION
  Report Type: Spontaneous
  Country: US (occurrence: US)
  Receive Date: 20181212
  Receipt Date: 20181220
  Transmission Date: 20190205
  Serious: Yes (Hospitalization)
  Sender: FDA-Public Use
  Company Number: US-UNITED THERAPEUTICS-UNT-2018-020194

PATIENT
  Age: 74 Year
  Sex: Male

DRUGS (3)
  1. REMODULIN [Suspect]
     Active Substance: TREPROSTINIL
     Indication: PULMONARY ARTERIAL HYPERTENSION
     Dosage: 0.21 ?G/KG, CONTINUING
     Route: 041
     Dates: start: 20120120
  2. REMODULIN [Suspect]
     Active Substance: TREPROSTINIL
     Dosage: 0.221 ?G/KG, CONTINUING
     Route: 041
     Dates: start: 20120703
  3. COUMADIN [Concomitant]
     Active Substance: WARFARIN SODIUM
     Indication: PRODUCT USED FOR UNKNOWN INDICATION
     Route: 065

REACTIONS (1)
  - Viral infection [Unknown]

NARRATIVE: CASE EVENT DATE: 20181204
